FAERS Safety Report 5691107-X (Version None)
Quarter: 2008Q2

REPORT INFORMATION
  Report Type: 
  Country: None (occurrence: None)
  Receive Date: 20080401
  Receipt Date: 20080327
  Transmission Date: 20081010
  Serious: Yes (Other)
  Sender: FDA-Public Use
  Company Number: AU-PFIZER INC-2008027920

PATIENT
  Sex: Male
  Weight: 107 kg

DRUGS (4)
  1. CHAMPIX [Suspect]
     Route: 048
  2. KARVEA [Concomitant]
     Route: 048
  3. LIPITOR [Concomitant]
     Route: 048
  4. LOSEC I.V. [Concomitant]
     Route: 048

REACTIONS (5)
  - ABNORMAL BEHAVIOUR [None]
  - AGGRESSION [None]
  - AGITATION [None]
  - CHILD ABUSE [None]
  - SPOUSAL ABUSE [None]
